FAERS Safety Report 7815975-8 (Version None)
Quarter: 2011Q4

REPORT INFORMATION
  Report Type: 
  Country: None (occurrence: None)
  Receive Date: 20111014
  Receipt Date: 20111006
  Transmission Date: 20120403
  Serious: Yes (Disabling)
  Sender: FDA-Public Use
  Company Number: US-MERCK-1107USA02570

PATIENT
  Age: 75 Year
  Sex: Female

DRUGS (6)
  1. BONIVA [Concomitant]
     Indication: OSTEOPENIA
     Route: 048
     Dates: start: 20060601, end: 20070301
  2. FOSAMAX [Suspect]
     Indication: OSTEOPOROSIS
     Route: 048
     Dates: start: 19990101, end: 20060601
  3. BONIVA [Concomitant]
     Indication: OSTEOPOROSIS
     Route: 048
     Dates: start: 20060601, end: 20070301
  4. ACTONEL [Concomitant]
     Indication: OSTEOPENIA
     Route: 048
     Dates: start: 20070301, end: 20081201
  5. FOSAMAX [Suspect]
     Indication: OSTEOPENIA
     Route: 048
     Dates: start: 19990101, end: 20060601
  6. ACTONEL [Concomitant]
     Indication: OSTEOPOROSIS
     Route: 048
     Dates: start: 20070301, end: 20081201

REACTIONS (9)
  - BLOOD CHOLESTEROL INCREASED [None]
  - JAW DISORDER [None]
  - ORAL INFECTION [None]
  - TOOTH DISORDER [None]
  - OSTEONECROSIS OF JAW [None]
  - ORAL TORUS [None]
  - STOMATITIS [None]
  - ARTHRALGIA [None]
  - GLOSSITIS [None]
